FAERS Safety Report 12944451 (Version 1)
Quarter: 2016Q4

REPORT INFORMATION
  Report Type: Spontaneous
  Country: US (occurrence: US)
  Receive Date: 20161115
  Receipt Date: 20161115
  Transmission Date: 20170207
  Serious: No
  Sender: FDA-Public Use
  Company Number: PHHY2016US156744

PATIENT
  Age: 75 Year
  Sex: Female

DRUGS (1)
  1. SALAGEN [Suspect]
     Active Substance: PILOCARPINE HYDROCHLORIDE
     Indication: PRODUCT USED FOR UNKNOWN INDICATION
     Dosage: 3 DF, UNK
     Route: 065
     Dates: start: 201609

REACTIONS (1)
  - Drug ineffective [Not Recovered/Not Resolved]
